FAERS Safety Report 23331862 (Version 1)
Quarter: 2023Q4

REPORT INFORMATION
  Report Type: Spontaneous
  Country: US (occurrence: None)
  Receive Date: 20231222
  Receipt Date: 20231222
  Transmission Date: 20240110
  Serious: No
  Sender: FDA-Public Use
  Company Number: None

PATIENT
  Age: 42 Year
  Sex: Female
  Weight: 158.6 kg

DRUGS (1)
  1. SOLIRIS [Suspect]
     Active Substance: ECULIZUMAB
     Indication: Myasthenia gravis
     Dosage: OTHER FREQUENCY : WEEKLY;?
     Route: 042
     Dates: start: 20231204

REACTIONS (3)
  - Mood altered [None]
  - Crying [None]
  - Depressed mood [None]
